FAERS Safety Report 4941641-2 (Version None)
Quarter: 2006Q1

REPORT INFORMATION
  Report Type: 
  Country: None (occurrence: None)
  Receive Date: 20060308
  Receipt Date: 20060301
  Transmission Date: 20060701
  Serious: Yes (Other)
  Sender: FDA-Public Use
  Company Number: 2006030874

PATIENT
  Age: 65 Year
  Sex: Female
  Weight: 58.0604 kg

DRUGS (7)
  1. LYRICA [Suspect]
     Indication: NEURALGIA
     Dosage: 100 MG (50 MG, 2 IN 1 D)
     Dates: start: 20060227
  2. SYNTHROID [Concomitant]
  3. TOPROL-XL [Concomitant]
  4. KLONOPIN [Concomitant]
  5. DEMADEX [Concomitant]
  6. ACTONEL [Concomitant]
  7. MICRO-K (POTASSIUM CHLORIDE) [Concomitant]

REACTIONS (6)
  - MEMORY IMPAIRMENT [None]
  - MUSCULAR WEAKNESS [None]
  - NASOPHARYNGEAL DISORDER [None]
  - PYREXIA [None]
  - SINUS DISORDER [None]
  - THROAT IRRITATION [None]
